FAERS Safety Report 10066453 (Version 1)
Quarter: 2014Q2

REPORT INFORMATION
  Report Type: Spontaneous
  Country: US (occurrence: None)
  Receive Date: 20140401
  Receipt Date: 20140401
  Transmission Date: 20141212
  Serious: Yes (Other)
  Sender: FDA-Public Use
  Company Number: PHEH2013US010572

PATIENT
  Age: 84 Year
  Sex: Male

DRUGS (15)
  1. EXELON PATCH [Suspect]
     Indication: DEMENTIA
     Route: 062
  2. CLONAZEPAM [Suspect]
     Indication: AUTONOMIC SEIZURE
  3. NAMENDA [Suspect]
     Route: 048
  4. MULTIPLE VITAMINS (ASCORBIC ACID, ERGOCALCIFEROL, FOLIC ACID, RETINOL, TOCOPHEROL, VITAMIN B NOS) [Concomitant]
  5. ASA (ACETYLSALICYLIC ACID) [Concomitant]
  6. VITAMIN D3 (COLECALCIFEROL) [Concomitant]
  7. B COMPLEX (NICOTINAMIDE, PYRIDOXINE HYDROCHLORIDE, RIBOFLAVIN, THIAMINE HYDROCHLORIDE) [Concomitant]
  8. LISINOPRIL (LISINOPRIL) [Concomitant]
  9. KLONOPIN (CLONAZEPAM) (TABLETS) [Concomitant]
  10. TAMSULOSIN (TAMSULOSIN) [Concomitant]
  11. LORAZEPAM (LORAZEPAM) [Concomitant]
  12. ZANTAC (RANITIDINE HYDROCHLORIDE) [Concomitant]
  13. OMPERAZOL ^ACYFABRIK^ (OMEPRAZOLE) [Concomitant]
  14. POLYETHYLENE GLYCOL (MACROGOL) [Concomitant]
  15. BABY ASPIRIN (ACETYLSALICYLIC ACID) [Concomitant]

REACTIONS (19)
  - Depression [None]
  - Paraesthesia [None]
  - Skin haemorrhage [None]
  - Speech disorder [None]
  - Throat tightness [None]
  - Dry mouth [None]
  - Skin disorder [None]
  - Lip swelling [None]
  - Chapped lips [None]
  - Vision blurred [None]
  - Drug administration error [None]
  - Skin discolouration [None]
  - Hypersensitivity [None]
  - Nausea [None]
  - Headache [None]
  - Application site erythema [None]
  - Application site pruritus [None]
  - Application site rash [None]
  - Skin reaction [None]
